FAERS Safety Report 25258635 (Version 1)
Quarter: 2025Q2

REPORT INFORMATION
  Report Type: Spontaneous
  Country: CN (occurrence: CN)
  Receive Date: 20250501
  Receipt Date: 20250501
  Transmission Date: 20250717
  Serious: Yes (Hospitalization)
  Sender: ABBVIE
  Company Number: CN-ABBVIE-6258281

PATIENT
  Age: 74 Year
  Sex: Male

DRUGS (3)
  1. VENETOCLAX [Suspect]
     Active Substance: VENETOCLAX
     Indication: Acute leukaemia
     Dosage: 200 MILLIGRAM
     Route: 048
     Dates: start: 20250212, end: 20250224
  2. AZACITIDINE [Suspect]
     Active Substance: AZACITIDINE
     Indication: Acute leukaemia
     Dosage: 75 MILLIGRAM
     Route: 058
     Dates: start: 20250212, end: 20250218
  3. GILTERITINIB [Concomitant]
     Active Substance: GILTERITINIB
     Indication: Acute leukaemia
     Dosage: 2 TABLET
     Route: 048
     Dates: start: 20250213, end: 20250428

REACTIONS (1)
  - Myelosuppression [Recovering/Resolving]

NARRATIVE: CASE EVENT DATE: 20250218
